FAERS Safety Report 12155518 (Version 1)
Quarter: 2016Q1

REPORT INFORMATION
  Report Type: Spontaneous
  Country: DE (occurrence: DE)
  Receive Date: 20160307
  Receipt Date: 20160307
  Transmission Date: 20160526
  Serious: Yes (Hospitalization)
  Sender: FDA-Public Use
  Company Number: DE-SA-2016SA041085

PATIENT
  Age: 58 Year
  Sex: Male
  Weight: 97.2 kg

DRUGS (1)
  1. OXALIPLATIN. [Suspect]
     Active Substance: OXALIPLATIN
     Indication: COLON CANCER
     Dosage: 10:25 - 10:35, 225 MG IN 1 DAY
     Route: 042
     Dates: start: 20160217

REACTIONS (6)
  - Heart rate decreased [Recovered/Resolved]
  - Pruritus generalised [Unknown]
  - Generalised erythema [Recovering/Resolving]
  - Malaise [Unknown]
  - Blood pressure decreased [Recovered/Resolved]
  - Flushing [Recovering/Resolving]

NARRATIVE: CASE EVENT DATE: 20160217
